FAERS Safety Report 7529918-8 (Version None)
Quarter: 2011Q2

REPORT INFORMATION
  Report Type: 
  Country: None (occurrence: None)
  Receive Date: 20110607
  Receipt Date: 20110602
  Transmission Date: 20111010
  Serious: Yes (Other)
  Sender: FDA-Public Use
  Company Number: US-PFIZER INC-2011121635

PATIENT
  Sex: Female
  Weight: 90.703 kg

DRUGS (3)
  1. LYRICA [Suspect]
     Indication: NEURALGIA
     Dosage: 75 MG, 2X/DAY
     Route: 048
     Dates: start: 20110601
  2. PRILOSEC [Concomitant]
     Indication: GASTRIC DISORDER
     Dosage: 40 MG, DAILY
     Route: 048
     Dates: start: 20100701
  3. BENTYL [Concomitant]
     Indication: GASTRIC DISORDER
     Dosage: 20 MG, 2X/DAY
     Route: 048
     Dates: start: 20100701

REACTIONS (3)
  - PALPITATIONS [None]
  - EUPHORIC MOOD [None]
  - FEELING DRUNK [None]
